FAERS Safety Report 22180382 (Version 1)
Quarter: 2023Q2

REPORT INFORMATION
  Report Type: Spontaneous
  Country: US (occurrence: US)
  Receive Date: 20230406
  Receipt Date: 20230406
  Transmission Date: 20230721
  Serious: No
  Sender: FDA-Public Use
  Company Number: US-AMGEN-USASP2023057280

PATIENT
  Sex: Male

DRUGS (1)
  1. REPATHA [Suspect]
     Active Substance: EVOLOCUMAB
     Indication: Dermatitis atopic
     Dosage: 140 MILLIGRAM, Q2WK
     Route: 058
     Dates: start: 20210629

REACTIONS (1)
  - Off label use [Unknown]
